FAERS Safety Report 6575067-5 (Version None)
Quarter: 2010Q1

REPORT INFORMATION
  Report Type: 
  Country: None (occurrence: None)
  Receive Date: 20100209
  Receipt Date: 20100129
  Transmission Date: 20100710
  Serious: Yes (Other)
  Sender: FDA-Public Use
  Company Number: US-AMGEN-QUU389494

PATIENT
  Sex: Male

DRUGS (2)
  1. ENBREL [Suspect]
     Indication: PSORIASIS
     Route: 058
     Dates: start: 20041001
  2. METHOTREXATE [Concomitant]
     Route: 048

REACTIONS (4)
  - FALL [None]
  - LOWER LIMB FRACTURE [None]
  - MULTIPLE SCLEROSIS [None]
  - PSORIASIS [None]
